FAERS Safety Report 5364395-7 (Version None)
Quarter: 2007Q2

REPORT INFORMATION
  Report Type: 
  Country: None (occurrence: None)
  Receive Date: 20070618
  Receipt Date: 20070611
  Transmission Date: 20071010
  Serious: Yes (Death)
  Sender: FDA-Public Use
  Company Number: 163-20785-07041470

PATIENT
  Age: 71 Year
  Sex: Female

DRUGS (51)
  1. REVLIMID [Suspect]
     Indication: MULTIPLE MYELOMA
     Dosage: 15 MG, 1 IN 1 D, ORAL
     Route: 048
     Dates: start: 20061124, end: 20070418
  2. THALOMID [Suspect]
     Indication: MULTIPLE MYELOMA
     Dosage: 400-50MG, DAILY, ORAL
     Route: 048
     Dates: start: 20031124, end: 20050801
  3. THALOMID [Suspect]
     Indication: MULTIPLE MYELOMA
     Dosage: 400-50MG, DAILY, ORAL
     Route: 048
     Dates: start: 20060526, end: 20061001
  4. THALOMID [Suspect]
  5. THALOMID [Suspect]
  6. THALOMID [Suspect]
  7. THALOMID [Suspect]
  8. THALOMID [Suspect]
  9. DEXAMETHASONE TAB [Concomitant]
  10. VELCADE [Concomitant]
  11. RITALIN [Concomitant]
  12. LEVOTHYROXINE SODIUM [Concomitant]
  13. LASIX [Concomitant]
  14. POTASSIUM CHLORIDE [Concomitant]
  15. MYRAPREX (PRAMIPEXOLE DIHYDROCHLORIDE) [Concomitant]
  16. ACYCLOVIR [Concomitant]
  17. CALTRATE (CALCIUM CARBONATE) [Concomitant]
  18. CELEXA [Concomitant]
  19. LEXAPRO [Concomitant]
  20. ALPRAZOLAM [Concomitant]
  21. BENADRYL [Concomitant]
  22. DOCUSATE SODIUM (DOCUSATE SODIUM) [Concomitant]
  23. FENTANYL (FENTANYL) (POULTICE OR PATCH) [Concomitant]
  24. ADVAIR DISCUS (SERETIDE MITE) [Concomitant]
  25. PREVACID [Concomitant]
  26. ATIVAN [Concomitant]
  27. MEDROXYPROGESTERONE [Concomitant]
  28. FLAGYL [Concomitant]
  29. HEPARIN [Concomitant]
  30. MAGNESIUM SULFATE [Concomitant]
  31. PEPCID [Concomitant]
  32. NEUPOGEN [Concomitant]
  33. DIFLUCAN [Concomitant]
  34. AREDIA [Concomitant]
  35. ARANESP [Concomitant]
  36. PROCRIT [Concomitant]
  37. NEXIUM [Concomitant]
  38. TYLENOL [Concomitant]
  39. PERCOCET [Concomitant]
  40. DUONEB [Concomitant]
  41. XANAX [Concomitant]
  42. AUGMENTIN '125' [Concomitant]
  43. METHADONE HCL [Concomitant]
  44. MORPHINE (MSIR) (MORPHINE) [Concomitant]
  45. ZOFRAN [Concomitant]
  46. LYRICA [Concomitant]
  47. COUMADIN [Concomitant]
  48. ZOSYN [Concomitant]
  49. PHENERGAN [Concomitant]
  50. SENOKOT [Concomitant]
  51. ULTRAM [Concomitant]

REACTIONS (2)
  - DISEASE PROGRESSION [None]
  - MULTIPLE MYELOMA [None]
